FAERS Safety Report 5547991-3 (Version None)
Quarter: 2007Q4

REPORT INFORMATION
  Report Type: 
  Country: None (occurrence: None)
  Receive Date: 20071211
  Receipt Date: 20070328
  Transmission Date: 20080405
  Serious: No
  Sender: FDA-Public Use
  Company Number: US-AMGEN-KDL208247

PATIENT
  Sex: Female

DRUGS (6)
  1. ENBREL [Suspect]
     Indication: RHEUMATOID ARTHRITIS
     Route: 058
     Dates: start: 20051121
  2. PREDNISONE [Concomitant]
     Dates: start: 19900101
  3. ACTONEL [Concomitant]
  4. ISORDIL [Concomitant]
  5. LIPITOR [Concomitant]
  6. ASPIRIN [Concomitant]

REACTIONS (2)
  - CARPAL TUNNEL SYNDROME [None]
  - MUSCULOSKELETAL STIFFNESS [None]
